FAERS Safety Report 8389412-1 (Version None)
Quarter: 2012Q2

REPORT INFORMATION
  Report Type: 
  Country: None (occurrence: None)
  Receive Date: 20120528
  Receipt Date: 20120517
  Transmission Date: 20120825
  Serious: Yes (Other)
  Sender: FDA-Public Use
  Company Number: BR-BRISTOL-MYERS SQUIBB COMPANY-16606485

PATIENT
  Age: 82 Year
  Sex: Female
  Weight: 70 kg

DRUGS (7)
  1. OMEPRAZOLE [Concomitant]
  2. ASPIRIN [Concomitant]
     Dosage: ASPIRINA PREVENT
  3. METFORMIN HYDROCHLORIDE [Concomitant]
  4. CRESTOR [Concomitant]
  5. IRBESARTAN [Suspect]
     Dosage: 1 DF : HALF TAB
     Route: 048
     Dates: start: 20100101
  6. GABAPENTIN [Concomitant]
  7. LANTUS [Suspect]
     Indication: DIABETES MELLITUS
     Route: 058
     Dates: start: 19850101

REACTIONS (1)
  - DEMENTIA ALZHEIMER'S TYPE [None]
